FAERS Safety Report 16497553 (Version 2)
Quarter: 2019Q3

REPORT INFORMATION
  Report Type: Spontaneous
  Country: DE (occurrence: DE)
  Receive Date: 20190628
  Receipt Date: 20190712
  Transmission Date: 20191004
  Serious: Yes (Hospitalization, Other)
  Sender: FDA-Public Use
  Company Number: PHHY2019DE137838

PATIENT
  Age: 7 Day

DRUGS (2)
  1. LEVETIRACETAM. [Suspect]
     Active Substance: LEVETIRACETAM
     Indication: PRODUCT USED FOR UNKNOWN INDICATION
     Dosage: 2000 MG, (375 MG/KG)
     Route: 042
  2. LEVETIRACETAM. [Suspect]
     Active Substance: LEVETIRACETAM
     Dosage: 300 MG/KG, UNK
     Route: 042

REACTIONS (4)
  - Off label use [Unknown]
  - Overdose [Unknown]
  - Toxicity to various agents [Unknown]
  - Product use issue [Unknown]
